FAERS Safety Report 13570904 (Version 1)
Quarter: 2017Q2

REPORT INFORMATION
  Report Type: Spontaneous
  Country: US (occurrence: US)
  Receive Date: 20170522
  Receipt Date: 20170522
  Transmission Date: 20170830
  Serious: Yes (Hospitalization)
  Sender: FDA-Public Use
  Company Number: None

PATIENT
  Age: 55 Year
  Sex: Female
  Weight: 53.4 kg

DRUGS (7)
  1. ALOGLIPTIN. [Concomitant]
     Active Substance: ALOGLIPTIN
  2. ATORVASTATIN [Concomitant]
     Active Substance: ATORVASTATIN
  3. LEVOTHYROXINE. [Concomitant]
     Active Substance: LEVOTHYROXINE
  4. ONDANSETRON [Concomitant]
     Active Substance: ONDANSETRON
  5. MULTIVITAMIN [Concomitant]
     Active Substance: VITAMINS
  6. DAPAGLIFLOZIN/METFORMIN XR [Suspect]
     Active Substance: DAPAGLIFLOZIN PROPANEDIOL\METFORMIN HYDROCHLORIDE
     Indication: DIABETES MELLITUS
     Route: 048
  7. ENTERIC-COATED ASPIRIN 81MG [Concomitant]

REACTIONS (5)
  - Hypovolaemia [None]
  - Ketoacidosis [None]
  - Gastroenteritis viral [None]
  - Tachypnoea [None]
  - Escherichia bacteraemia [None]

NARRATIVE: CASE EVENT DATE: 20170328
